FAERS Safety Report 10044861 (Version 1)
Quarter: 2014Q1

REPORT INFORMATION
  Report Type: Spontaneous
  Country: US (occurrence: US)
  Receive Date: 20140328
  Receipt Date: 20140328
  Transmission Date: 20141002
  Serious: No
  Sender: FDA-Public Use
  Company Number: US-GILEAD-2014-0097802

PATIENT
  Sex: Female

DRUGS (1)
  1. LETAIRIS [Suspect]
     Indication: PRODUCT USED FOR UNKNOWN INDICATION
     Route: 065
     Dates: start: 20130716

REACTIONS (1)
  - Oedema peripheral [Unknown]
